FAERS Safety Report 10171727 (Version 1)
Quarter: 2014Q2

REPORT INFORMATION
  Report Type: Spontaneous
  Country: US (occurrence: None)
  Receive Date: 20140512
  Receipt Date: 20140512
  Transmission Date: 20141212
  Serious: Yes (Hospitalization)
  Sender: FDA-Public Use
  Company Number: 2334286

PATIENT
  Age: 40 Year
  Sex: Male

DRUGS (2)
  1. LIPOSYN [Suspect]
     Indication: HYPOTENSION
     Route: 040
  2. CHARCOAL ACTIVATED [Concomitant]

REACTIONS (8)
  - Acute respiratory distress syndrome [None]
  - Laboratory test interference [None]
  - Acidosis [None]
  - Anuria [None]
  - Haemodialysis [None]
  - Hyperlipidaemia [None]
  - Thrombosis in device [None]
  - Pleural effusion [None]
